FAERS Safety Report 20682649 (Version 1)
Quarter: 2022Q2

REPORT INFORMATION
  Report Type: Report from Study
  Country: CA (occurrence: CA)
  Receive Date: 20220407
  Receipt Date: 20220407
  Transmission Date: 20220720
  Serious: Yes (Death, Hospitalization)
  Sender: FDA-Public Use
  Company Number: CA-ABBVIE-22K-028-4308561-00

PATIENT
  Age: 35 Year
  Sex: Male

DRUGS (2)
  1. VENCLEXTA [Suspect]
     Active Substance: VENETOCLAX
     Indication: Acute myeloid leukaemia
     Dosage: 50 MG 1 TABLET ORALLY WITH 10 MG 2 TABLET
     Route: 048
     Dates: start: 20211021, end: 20220223
  2. AZACITIDINE [Concomitant]
     Active Substance: AZACITIDINE
     Indication: Acute myeloid leukaemia recurrent
     Dosage: DAILY FOR 7/28 DAYS
     Route: 058

REACTIONS (4)
  - Malignant ascites [Fatal]
  - Chloroma [Fatal]
  - Myeloid leukaemia [Fatal]
  - Hospitalisation [Unknown]

NARRATIVE: CASE EVENT DATE: 20220217
